FAERS Safety Report 12171966 (Version 1)
Quarter: 2016Q1

REPORT INFORMATION
  Report Type: Spontaneous
  Country: CA (occurrence: CA)
  Receive Date: 20160311
  Receipt Date: 20160311
  Transmission Date: 20160526
  Serious: Yes (Life-Threatening, Disabling, Other)
  Sender: FDA-Public Use
  Company Number: CA-GLAXOSMITHKLINE-CA2016GSK034985

PATIENT
  Age: 62 Year
  Sex: Male
  Weight: 98 kg

DRUGS (1)
  1. AVANDIA [Suspect]
     Active Substance: ROSIGLITAZONE MALEATE
     Indication: PRODUCT USED FOR UNKNOWN INDICATION
     Dosage: 2 TABLET, 1D
     Route: 048

REACTIONS (3)
  - Leg amputation [Recovered/Resolved]
  - Cerebrovascular accident [Recovered/Resolved]
  - Coronary artery bypass [Recovered/Resolved]
